FAERS Safety Report 7319443-1 (Version None)
Quarter: 2011Q1

REPORT INFORMATION
  Report Type: 
  Country: None (occurrence: None)
  Receive Date: 20110228
  Receipt Date: 20100326
  Transmission Date: 20110831
  Serious: No
  Sender: FDA-Public Use
  Company Number: A0852184A

PATIENT
  Age: 42 Year
  Sex: Female

DRUGS (2)
  1. CYMBALTA [Concomitant]
  2. LAMICTAL [Suspect]
     Indication: BIPOLAR DISORDER
     Dosage: 25MG PER DAY
     Route: 048
     Dates: start: 20100312, end: 20100324

REACTIONS (4)
  - RASH [None]
  - VULVOVAGINAL MYCOTIC INFECTION [None]
  - URTICARIA [None]
  - PRURITUS [None]
